FAERS Safety Report 17667490 (Version 1)
Quarter: 2020Q2

REPORT INFORMATION
  Report Type: Spontaneous
  Country: US (occurrence: US)
  Receive Date: 20200414
  Receipt Date: 20200414
  Transmission Date: 20200713
  Serious: No
  Sender: FDA-Public Use
  Company Number: US-BAYER-2020-057222

PATIENT
  Age: 76 Year
  Sex: Female

DRUGS (5)
  1. ADVIL [IBUPROFEN] [Concomitant]
     Active Substance: IBUPROFEN
  2. ALEVE [Suspect]
     Active Substance: NAPROXEN SODIUM
     Indication: TOOTHACHE
     Dosage: 1 DF, BID
     Route: 048
     Dates: start: 202003, end: 20200402
  3. AMOXICILLIN. [Concomitant]
     Active Substance: AMOXICILLIN
  4. ASPIRIN (PAIN AND FEVER) [Suspect]
     Active Substance: ASPIRIN
  5. AMLODIPINE [Concomitant]
     Active Substance: AMLODIPINE BESYLATE

REACTIONS (2)
  - Blood urine present [Unknown]
  - Drug hypersensitivity [Unknown]

NARRATIVE: CASE EVENT DATE: 202003
